FAERS Safety Report 24159479 (Version 1)
Quarter: 2024Q3

REPORT INFORMATION
  Report Type: Report from Study
  Country: US (occurrence: US)
  Receive Date: 20240731
  Receipt Date: 20240731
  Transmission Date: 20241017
  Serious: No
  Sender: AURINIA PHARMACEUTICALS
  Company Number: US-AURINIA PHARMACEUTICALS INC.-AUR-005461

PATIENT
  Sex: Female

DRUGS (2)
  1. LUPKYNIS [Suspect]
     Active Substance: VOCLOSPORIN
     Indication: Lupus nephritis
     Dosage: 23.7 MILLIGRAM, BID
     Route: 048
     Dates: start: 20230107
  2. LUPKYNIS [Suspect]
     Active Substance: VOCLOSPORIN
     Dosage: UNK

REACTIONS (6)
  - Swelling [Unknown]
  - Arthralgia [Unknown]
  - Vomiting [Unknown]
  - Protein urine present [Unknown]
  - Absence of immediate treatment response [Unknown]
  - Disease progression [Unknown]
